FAERS Safety Report 5373975-4 (Version None)
Quarter: 2007Q2

REPORT INFORMATION
  Report Type: 
  Country: None (occurrence: None)
  Receive Date: 20070627
  Receipt Date: 20070614
  Transmission Date: 20071010
  Serious: Yes (Death)
  Sender: FDA-Public Use
  Company Number: 2007S1000257

PATIENT
  Age: 57 Year
  Sex: Male

DRUGS (4)
  1. CUBICIN [Suspect]
     Indication: BACTERAEMIA
     Dosage: 6 MG/KG; Q24H; IV
     Route: 042
     Dates: start: 20070227, end: 20070401
  2. CUBICIN [Suspect]
     Indication: THROMBOPHLEBITIS SEPTIC
     Dosage: 6 MG/KG; Q24H; IV
     Route: 042
     Dates: start: 20070227, end: 20070401
  3. VANCOMYCIN HCL [Concomitant]
  4. LINEZOLID [Concomitant]

REACTIONS (8)
  - ANTIMICROBIAL SUSCEPTIBILITY TEST RESISTANT [None]
  - ECHOCARDIOGRAM ABNORMAL [None]
  - ENDOCARDITIS [None]
  - HYPOTENSION [None]
  - MITRAL VALVE DISEASE [None]
  - PYREXIA [None]
  - STAPHYLOCOCCAL BACTERAEMIA [None]
  - TRICUSPID VALVE DISEASE [None]
